FAERS Safety Report 7859572 (Version 2)
Quarter: 2014Q1

REPORT INFORMATION
  Report Type: Spontaneous
  Country: GB (occurrence: GB)
  Receive Date: 20110316
  Receipt Date: 20140303
  Transmission Date: 20141002
  Serious: Yes (Other)
  Sender: FDA-Public Use
  Company Number: GB-TEVA-270545ISR

PATIENT
  Age: 83 Year
  Sex: Female

DRUGS (2)
  1. CLARITHROMYCIN [Suspect]
     Indication: PNEUMONIA
  2. SIMVASTATIN [Interacting]
     Indication: HYPERLIPIDAEMIA
     Route: 048

REACTIONS (6)
  - Drug interaction [Unknown]
  - Dehydration [Unknown]
  - Muscular weakness [Unknown]
  - Myalgia [Unknown]
  - Hypercalcaemia [Unknown]
  - Blood creatine phosphokinase increased [Unknown]
